FAERS Safety Report 8388120-0 (Version None)
Quarter: 2012Q2

REPORT INFORMATION
  Report Type: 
  Country: None (occurrence: None)
  Receive Date: 20120525
  Receipt Date: 20120521
  Transmission Date: 20120825
  Serious: No
  Sender: FDA-Public Use
  Company Number: US-TEVA-339644USA

PATIENT
  Sex: Male

DRUGS (7)
  1. ALFUZOSIN HYDROCHLORIDE [Concomitant]
     Indication: PROSTATOMEGALY
     Route: 048
  2. AMIODARONE HCL [Concomitant]
     Indication: ARRHYTHMIA
     Route: 048
  3. LEVOTHYROXINE SODIUM [Concomitant]
     Indication: HYPOTHYROIDISM
     Route: 048
  4. CARBIDOPA + LEVODOPA [Concomitant]
     Indication: PARKINSON'S DISEASE
     Route: 048
  5. FELODIPINE [Concomitant]
     Indication: HYPERTENSION
     Route: 048
  6. AZILECT [Suspect]
     Indication: PARKINSON'S DISEASE
     Dosage: .5 MILLIGRAM;
     Route: 048
     Dates: start: 20120508
  7. DUTASTERIDE [Concomitant]
     Indication: PROSTATOMEGALY
     Route: 048

REACTIONS (1)
  - DRUG INEFFECTIVE [None]
